FAERS Safety Report 9876985 (Version 1)
Quarter: 2014Q1

REPORT INFORMATION
  Report Type: Spontaneous
  Country: US (occurrence: US)
  Receive Date: 20140206
  Receipt Date: 20140206
  Transmission Date: 20141002
  Serious: No
  Sender: FDA-Public Use
  Company Number: US-PFIZER INC-2014032815

PATIENT
  Age: 58 Year
  Sex: Female
  Weight: 69.84 kg

DRUGS (2)
  1. CHANTIX [Suspect]
     Indication: SMOKING CESSATION THERAPY
     Dosage: 0.5 MG, 1X/DAY
     Route: 048
     Dates: start: 201401, end: 2014
  2. CHANTIX [Suspect]
     Dosage: UNK
     Route: 048
     Dates: start: 2014

REACTIONS (1)
  - Fatigue [Unknown]
